FAERS Safety Report 5008901-0 (Version None)
Quarter: 2006Q2

REPORT INFORMATION
  Report Type: 
  Country: None (occurrence: None)
  Receive Date: 20060518
  Receipt Date: 20060505
  Transmission Date: 20061013
  Serious: Yes (Hospitalization)
  Sender: FDA-Public Use
  Company Number: MC200600238

PATIENT
  Sex: Male

DRUGS (1)
  1. ANGIOMAX [Suspect]
     Dosage: 6.6 ML, BOLUS, INTRAVENOUS; IV DRIP

REACTIONS (2)
  - CORONARY ARTERY EMBOLISM [None]
  - TROPONIN INCREASED [None]
